FAERS Safety Report 10261921 (Version 1)
Quarter: 2014Q2

REPORT INFORMATION
  Report Type: Spontaneous
  Country: US (occurrence: US)
  Receive Date: 20140626
  Receipt Date: 20140626
  Transmission Date: 20141212
  Serious: Yes (Other)
  Sender: FDA-Public Use
  Company Number: US-ACTAVIS-2014-13365

PATIENT
  Sex: Female

DRUGS (1)
  1. LORAZEPAM (WATSON LABORATORIES) [Suspect]
     Indication: ANXIETY
     Dosage: UNK, UNKNOWN
     Route: 065

REACTIONS (6)
  - Open angle glaucoma [Unknown]
  - Drug ineffective [Unknown]
  - Constipation [Unknown]
  - Diverticulum [Unknown]
  - Dry mouth [Unknown]
  - Oedema [Unknown]
